FAERS Safety Report 16057129 (Version 1)
Quarter: 2019Q1

REPORT INFORMATION
  Report Type: Spontaneous
  Country: US (occurrence: US)
  Receive Date: 20190311
  Receipt Date: 20190311
  Transmission Date: 20190418
  Serious: No
  Sender: FDA-Public Use
  Company Number: US-BAYER-2019-048692

PATIENT
  Age: 69 Year
  Sex: Female
  Weight: 59 kg

DRUGS (4)
  1. MIRALAX [Suspect]
     Active Substance: POLYETHYLENE GLYCOL 3350
     Indication: CONSTIPATION PROPHYLAXIS
     Dosage: 1 PACKET DAILY
     Route: 048
     Dates: start: 20190307
  2. MIRALAX [Suspect]
     Active Substance: POLYETHYLENE GLYCOL 3350
     Indication: CONSTIPATION PROPHYLAXIS
     Dosage: 1 CAPFUL DAILY
     Route: 048
     Dates: start: 20190305, end: 20190305
  3. COLAX [BISACODYL] [Concomitant]
     Dosage: EVERY 2-3 DAYS
  4. MIRALAX [Suspect]
     Active Substance: POLYETHYLENE GLYCOL 3350
     Indication: CONSTIPATION PROPHYLAXIS
     Dosage: 1 UNK
     Route: 048
     Dates: start: 20190304

REACTIONS (5)
  - Product use in unapproved indication [Unknown]
  - Product taste abnormal [Recovered/Resolved]
  - Product odour abnormal [Recovered/Resolved]
  - Off label use [None]
  - Poor quality product administered [None]

NARRATIVE: CASE EVENT DATE: 20190305
